FAERS Safety Report 11918936 (Version 1)
Quarter: 2016Q1

REPORT INFORMATION
  Report Type: Spontaneous
  Country: US (occurrence: None)
  Receive Date: 20160114
  Receipt Date: 20160114
  Transmission Date: 20160526
  Serious: No
  Sender: FDA-Public Use
  Company Number: None

PATIENT
  Age: 23 Year
  Sex: Male

DRUGS (2)
  1. 6-BROMOANDROSTENEDIONE [Suspect]
     Active Substance: DIETARY SUPPLEMENT
     Indication: MUSCLE BUILDING THERAPY
     Dates: start: 20140801, end: 20141116
  2. METHYL 1 TESTOSTERONE [Suspect]
     Active Substance: METHYL-1-TESTOSTERONE
     Indication: MUSCLE BUILDING THERAPY
     Dates: start: 20140704, end: 20141116

REACTIONS (3)
  - Drug-induced liver injury [None]
  - Hepatitis [None]
  - Cholestasis [None]

NARRATIVE: CASE EVENT DATE: 20141123
